FAERS Safety Report 5892615-9 (Version None)
Quarter: 2008Q3

REPORT INFORMATION
  Report Type: 
  Country: None (occurrence: None)
  Receive Date: 20080919
  Receipt Date: 20080915
  Transmission Date: 20090109
  Serious: Yes (Hospitalization)
  Sender: FDA-Public Use
  Company Number: 033883

PATIENT
  Age: 74 Year
  Sex: Female

DRUGS (4)
  1. METHOTREXATE [Suspect]
     Dosage: 15 MG, QD, ORAL
     Route: 048
     Dates: start: 20031001, end: 20050801
  2. ENBREL [Suspect]
     Indication: RHEUMATOID ARTHRITIS
     Dosage: 25 MG, 2/WEEEK; STN 103795, SUBCUTANEOUS
     Route: 058
     Dates: start: 20030101, end: 20050801
  3. ALENDRONATE SODIUM [Concomitant]
  4. FOLIC ACID [Concomitant]

REACTIONS (1)
  - LISTERIOSIS [None]
